FAERS Safety Report 14199627 (Version 4)
Quarter: 2020Q2

REPORT INFORMATION
  Report Type: Report from Study
  Country: DE (occurrence: DE)
  Receive Date: 20171117
  Receipt Date: 20200429
  Transmission Date: 20200713
  Serious: Yes (Death, Life-Threatening, Hospitalization, Other)
  Sender: FDA-Public Use
  Company Number: DE-INCYTE CORPORATION-2017IN009705

PATIENT

DRUGS (13)
  1. SABAL [Concomitant]
     Indication: BENIGN PROSTATIC HYPERPLASIA
     Dosage: 160 MG, UNK
     Route: 048
     Dates: start: 20171008
  2. METOPROLOL. [Concomitant]
     Active Substance: METOPROLOL
     Indication: ARRHYTHMIA PROPHYLAXIS
     Dosage: 100 MG, UNK
     Route: 048
     Dates: start: 20170620
  3. JAKAVI [Suspect]
     Active Substance: RUXOLITINIB
     Dosage: 10 MG, BID
     Route: 048
     Dates: start: 20181009, end: 20181105
  4. PROSTAGUTT [Concomitant]
     Indication: BENIGN PROSTATIC HYPERPLASIA
     Dosage: 120 MG, UNK
     Route: 048
     Dates: start: 20171008
  5. GINSENG [PANAX GINSENG] [Concomitant]
     Indication: NUTRITIONAL SUPPLEMENTATION
     Dosage: 360 MG, UNK
     Route: 048
     Dates: start: 20130315, end: 20170602
  6. PANTOPRAZOL [Concomitant]
     Active Substance: PANTOPRAZOLE SODIUM
     Indication: GASTRITIS PROPHYLAXIS
     Dosage: 20 MG, UNK
     Route: 048
     Dates: start: 20170620
  7. JAKAVI [Suspect]
     Active Substance: RUXOLITINIB
     Indication: POLYCYTHAEMIA VERA
     Dosage: 20 MG, BID
     Route: 048
     Dates: start: 20161222, end: 20181008
  8. ASPIRIN. [Concomitant]
     Active Substance: ASPIRIN
     Indication: THROMBOSIS PROPHYLAXIS
     Dosage: 100 MG, UNK
     Route: 048
     Dates: start: 20140715
  9. JAKAVI [Suspect]
     Active Substance: RUXOLITINIB
     Dosage: 15 MG, BID
     Route: 048
     Dates: start: 20181106
  10. RAMIPRIL. [Concomitant]
     Active Substance: RAMIPRIL
     Indication: HYPERTENSION
     Dosage: 2.5 MG, UNK
     Route: 048
     Dates: start: 20170620
  11. FOLIC ACID. [Concomitant]
     Active Substance: FOLIC ACID
     Indication: VITAMIN SUPPLEMENTATION
     Dosage: 5 MG, UNK
     Route: 048
     Dates: start: 20130702, end: 20170602
  12. AMIODARON [AMIODARONE] [Concomitant]
     Active Substance: AMIODARONE
     Indication: ARRHYTHMIA
     Dosage: 200 MG, UNK
     Route: 048
     Dates: start: 20170620
  13. SPIRONOLACTON [Concomitant]
     Active Substance: SPIRONOLACTONE
     Indication: HYPERTENSION
     Dosage: 50 MG, UNK
     Route: 048
     Dates: start: 20170901

REACTIONS (4)
  - Pleural effusion [Recovered/Resolved]
  - Ventricular fibrillation [Recovered/Resolved]
  - Thrombocytopenia [Not Recovered/Not Resolved]
  - Myelofibrosis [Fatal]

NARRATIVE: CASE EVENT DATE: 20170602
